FAERS Safety Report 22141379 (Version 1)
Quarter: 2023Q1

REPORT INFORMATION
  Report Type: Spontaneous
  Country: CN (occurrence: CN)
  Receive Date: 20230327
  Receipt Date: 20230327
  Transmission Date: 20230418
  Serious: Yes (Hospitalization)
  Sender: FDA-Public Use
  Company Number: CN-PFIZER INC-PV202300054672

PATIENT
  Age: 5 Year
  Sex: Male
  Weight: 20.6 kg

DRUGS (3)
  1. CYTARABINE [Suspect]
     Active Substance: CYTARABINE
     Indication: Acute lymphocytic leukaemia
     Dosage: 43.5 MG, 2X/DAY
     Dates: start: 20230308, end: 20230314
  2. CYCLOPHOSPHAMIDE [Suspect]
     Active Substance: CYCLOPHOSPHAMIDE
     Indication: Acute lymphocytic leukaemia
     Dosage: 0.87 G, 1X/DAY
     Route: 041
     Dates: start: 20230308, end: 20230308
  3. VINCRISTINE SULFATE [Suspect]
     Active Substance: VINCRISTINE SULFATE
     Indication: Acute lymphocytic leukaemia
     Dosage: 1.3 MG, 1X/DAY
     Route: 041
     Dates: start: 20230305, end: 20230305

REACTIONS (3)
  - Myelosuppression [Recovering/Resolving]
  - Infection [Recovering/Resolving]
  - Skin haemorrhage [Recovering/Resolving]

NARRATIVE: CASE EVENT DATE: 20230318
